FAERS Safety Report 7003729-4 (Version None)
Quarter: 2010Q3

REPORT INFORMATION
  Report Type: 
  Country: None (occurrence: None)
  Receive Date: 20100920
  Receipt Date: 20100112
  Transmission Date: 20110219
  Serious: No
  Sender: FDA-Public Use
  Company Number: US-WYE-H10914109

PATIENT
  Sex: Male
  Weight: 104.42 kg

DRUGS (2)
  1. PRISTIQ [Suspect]
     Indication: DEPRESSION
     Route: 048
     Dates: start: 20090904
  2. TESTOSTERONE [Concomitant]

REACTIONS (1)
  - HEADACHE [None]
